FAERS Safety Report 9565984 (Version 1)
Quarter: 2013Q3

REPORT INFORMATION
  Report Type: Spontaneous
  Country: CA (occurrence: US)
  Receive Date: 20130930
  Receipt Date: 20130930
  Transmission Date: 20140515
  Serious: Yes (Hospitalization)
  Sender: FDA-Public Use
  Company Number: US-PFIZER INC-2013275483

PATIENT
  Age: 70 Year
  Sex: Male

DRUGS (2)
  1. IBUPROFEN [Suspect]
     Indication: ARTHRALGIA
     Dosage: 400 MG, 4X/DAY
  2. IBUPROFEN [Suspect]
     Indication: UPPER RESPIRATORY TRACT INFLAMMATION

REACTIONS (2)
  - Renal papillary necrosis [Unknown]
  - Haematuria [Unknown]
